FAERS Safety Report 10729500 (Version 2)
Quarter: 2015Q1

REPORT INFORMATION
  Report Type: Spontaneous
  Country: US (occurrence: US)
  Receive Date: 20150122
  Receipt Date: 20150306
  Transmission Date: 20150721
  Serious: Yes (Other)
  Sender: FDA-Public Use
  Company Number: US-PFIZER INC-2015025633

PATIENT
  Age: 54 Year
  Sex: Female

DRUGS (10)
  1. IBUPROFEN. [Concomitant]
     Active Substance: IBUPROFEN
     Indication: PYREXIA
  2. TYLENOL [Concomitant]
     Active Substance: ACETAMINOPHEN
     Indication: HEADACHE
     Dosage: UNK, AS NEEDED AS DIRECTED
  3. TYLENOL [Concomitant]
     Active Substance: ACETAMINOPHEN
     Indication: PAIN
  4. ASPIRIN. [Concomitant]
     Active Substance: ASPIRIN
     Indication: CARDIOVASCULAR EVENT PROPHYLAXIS
     Dosage: 81 MG, 1X/DAY
     Dates: start: 2004
  5. IBUPROFEN. [Concomitant]
     Active Substance: IBUPROFEN
     Indication: NASOPHARYNGITIS
  6. TYLENOL [Concomitant]
     Active Substance: ACETAMINOPHEN
     Indication: NASOPHARYNGITIS
  7. TYLENOL [Concomitant]
     Active Substance: ACETAMINOPHEN
     Indication: PYREXIA
  8. IBUPROFEN. [Concomitant]
     Active Substance: IBUPROFEN
     Indication: HEADACHE
     Dosage: UNK, AS NEEDED AS DIRECTED
  9. LIPITOR [Suspect]
     Active Substance: ATORVASTATIN CALCIUM
     Indication: BLOOD CHOLESTEROL INCREASED
     Dosage: 20 MG INCREASED TO 40 MG INCREASED TO 80 MG ONCE A DAY
     Route: 048
     Dates: start: 19990813, end: 2012
  10. IBUPROFEN. [Concomitant]
     Active Substance: IBUPROFEN
     Indication: PAIN

REACTIONS (1)
  - Type 2 diabetes mellitus [Not Recovered/Not Resolved]

NARRATIVE: CASE EVENT DATE: 20050527
